FAERS Safety Report 7546143-5 (Version None)
Quarter: 2011Q2

REPORT INFORMATION
  Report Type: 
  Country: None (occurrence: None)
  Receive Date: 20110614
  Receipt Date: 20030911
  Transmission Date: 20111010
  Serious: Yes (Other)
  Sender: FDA-Public Use
  Company Number: PHFR2003GB01099

PATIENT
  Sex: Female

DRUGS (1)
  1. CLOZAPINE [Suspect]
     Indication: TARDIVE DYSKINESIA
     Route: 048
     Dates: start: 19970718

REACTIONS (4)
  - HAEMOGLOBIN INCREASED [None]
  - RED BLOOD CELL COUNT INCREASED [None]
  - FULL BLOOD COUNT ABNORMAL [None]
  - HAEMATOCRIT INCREASED [None]
